FAERS Safety Report 25440150 (Version 2)
Quarter: 2025Q2

REPORT INFORMATION
  Report Type: Spontaneous
  Country: FR (occurrence: FR)
  Receive Date: 20250616
  Receipt Date: 20250626
  Transmission Date: 20250716
  Serious: Yes (Life-Threatening, Hospitalization, Other)
  Sender: MYLAN
  Company Number: FR-MLMSERVICE-20250519-PI512755-00249-3

PATIENT
  Age: 56 Year
  Sex: Female

DRUGS (12)
  1. OXALIPLATIN [Suspect]
     Active Substance: OXALIPLATIN
     Indication: Adenocarcinoma of colon
  2. OXALIPLATIN [Suspect]
     Active Substance: OXALIPLATIN
  3. OXALIPLATIN [Suspect]
     Active Substance: OXALIPLATIN
  4. OXALIPLATIN [Suspect]
     Active Substance: OXALIPLATIN
  5. METHYLPREDNISOLONE [Suspect]
     Active Substance: METHYLPREDNISOLONE
     Indication: Chemotherapy side effect prophylaxis
  6. FLUOROURACIL [Concomitant]
     Active Substance: FLUOROURACIL
     Indication: Adenocarcinoma of colon
  7. FLUOROURACIL [Concomitant]
     Active Substance: FLUOROURACIL
  8. FLUOROURACIL [Concomitant]
     Active Substance: FLUOROURACIL
  9. FLUOROURACIL [Concomitant]
     Active Substance: FLUOROURACIL
  10. BEVACIZUMAB [Concomitant]
     Active Substance: BEVACIZUMAB
     Indication: Adenocarcinoma of colon
  11. BEVACIZUMAB [Concomitant]
     Active Substance: BEVACIZUMAB
  12. BEVACIZUMAB [Concomitant]
     Active Substance: BEVACIZUMAB

REACTIONS (3)
  - Immune thrombocytopenia [Recovered/Resolved]
  - Thrombocytopenia [Recovered/Resolved]
  - Malaise [Unknown]

NARRATIVE: CASE EVENT DATE: 20240101
